FAERS Safety Report 13408073 (Version 1)
Quarter: 2017Q2

REPORT INFORMATION
  Report Type: Spontaneous
  Country: FR (occurrence: FR)
  Receive Date: 20170406
  Receipt Date: 20170406
  Transmission Date: 20170830
  Serious: Yes (Other)
  Sender: FDA-Public Use
  Company Number: FR-BRISTOL-MYERS SQUIBB COMPANY-BMS-2016-034239

PATIENT
  Age: 24 Year
  Sex: Male

DRUGS (2)
  1. ABILIFY [Suspect]
     Active Substance: ARIPIPRAZOLE
     Indication: HALLUCINATION, AUDITORY
     Route: 065
  2. ABILIFY [Suspect]
     Active Substance: ARIPIPRAZOLE
     Indication: PSYCHOTIC DISORDER
     Dosage: 1 MG, UNK
     Route: 048
     Dates: start: 20160402

REACTIONS (5)
  - Prescribed underdose [Unknown]
  - Sexual dysfunction [Recovered/Resolved]
  - Psychiatric symptom [Unknown]
  - Product use in unapproved indication [Unknown]
  - Apathy [Unknown]

NARRATIVE: CASE EVENT DATE: 20160421
